FAERS Safety Report 4742278-0 (Version None)
Quarter: 2005Q3

REPORT INFORMATION
  Report Type: 
  Country: None (occurrence: None)
  Receive Date: 20050811
  Receipt Date: 20050401
  Transmission Date: 20060218
  Serious: No
  Sender: FDA-Public Use
  Company Number: US-GLAXOSMITHKLINE-A0552303A

PATIENT
  Age: 60 Year
  Sex: Male

DRUGS (14)
  1. PAXIL CR [Suspect]
     Dosage: 25MG PER DAY
     Route: 048
     Dates: start: 20031201, end: 20050315
  2. TOPROL-XL [Concomitant]
  3. ZOCOR [Concomitant]
  4. METHOTREXATE [Concomitant]
  5. UNKNOWN MEDICATION [Concomitant]
     Route: 065
  6. ALENDRONATE [Concomitant]
  7. PLAQUENIL [Concomitant]
  8. PREDNISONE [Concomitant]
  9. ASPIRIN [Concomitant]
  10. MULTI-VITAMIN [Concomitant]
  11. CALCIUM GLUCONATE [Concomitant]
  12. PREVACID [Concomitant]
  13. LUTEIN [Concomitant]
     Route: 065
  14. SAW PALMETTO [Concomitant]
     Route: 065

REACTIONS (4)
  - DIZZINESS [None]
  - DRUG WITHDRAWAL SYNDROME [None]
  - HEADACHE [None]
  - NAUSEA [None]
